FAERS Safety Report 12963457 (Version 1)
Quarter: 2016Q4

REPORT INFORMATION
  Report Type: Spontaneous
  Country: US (occurrence: US)
  Receive Date: 20161122
  Receipt Date: 20161122
  Transmission Date: 20170207
  Serious: No
  Sender: FDA-Public Use
  Company Number: US-BEH-2016075415

PATIENT
  Sex: Female
  Weight: 58.96 kg

DRUGS (10)
  1. PREDNISONE. [Concomitant]
     Active Substance: PREDNISONE
     Route: 065
  2. DIPHENHYDRAMINE. [Concomitant]
     Active Substance: DIPHENHYDRAMINE
     Route: 065
  3. LMX                                /00033401/ [Concomitant]
     Route: 065
  4. VIVELLE-DOT [Concomitant]
     Active Substance: ESTRADIOL
     Route: 065
  5. HIZENTRA [Suspect]
     Active Substance: HUMAN IMMUNOGLOBULIN G
     Indication: HYPER IGM SYNDROME
     Dosage: 10 G, QW
     Route: 058
     Dates: start: 20110330
  6. FLORINEF ACETATE [Concomitant]
     Active Substance: FLUDROCORTISONE ACETATE
     Route: 065
  7. EFFEXOR [Concomitant]
     Active Substance: VENLAFAXINE HYDROCHLORIDE
     Route: 065
  8. FIRST-TESTOSTERONE [Concomitant]
     Active Substance: TESTOSTERONE
     Route: 065
  9. EPIPEN [Concomitant]
     Active Substance: EPINEPHRINE
     Route: 065
  10. PROGESTERONE. [Concomitant]
     Active Substance: PROGESTERONE
     Route: 065

REACTIONS (1)
  - Osteoporosis [Unknown]
